FAERS Safety Report 9471433 (Version 2)
Quarter: 2013Q4

REPORT INFORMATION
  Report Type: Spontaneous
  Country: IT (occurrence: IT)
  Receive Date: 20130822
  Receipt Date: 20131021
  Transmission Date: 20140711
  Serious: Yes (Hospitalization)
  Sender: FDA-Public Use
  Company Number: IT-TEVA-426295ISR

PATIENT
  Age: 58 Year
  Sex: Male

DRUGS (8)
  1. ATENOLOLO [Suspect]
     Indication: HYPERTENSION
     Dosage: 100 MILLIGRAM DAILY;
     Route: 048
     Dates: start: 20070101, end: 20130620
  2. KCL RETARD [Suspect]
     Indication: HYPERTENSION
     Dosage: 1 DOSAGE FORMS DAILY;
     Route: 048
     Dates: start: 20070101, end: 20130620
  3. DRONEDARONE CLORIDRATO [Suspect]
     Indication: ATRIAL FIBRILLATION
     Dosage: 400 MILLIGRAM DAILY;
     Route: 048
     Dates: start: 20070101, end: 20130620
  4. CRESTOR [Concomitant]
  5. PANTORC 20MG [Concomitant]
     Dosage: GASTRO-RESISTANT TABLETS
  6. FELODIPINA [Concomitant]
  7. LASIX 25MG [Concomitant]
  8. COUMADIN 5MG [Concomitant]

REACTIONS (2)
  - Hyperkalaemia [Recovered/Resolved]
  - Nodal arrhythmia [Recovered/Resolved]
